FAERS Safety Report 4398623-1 (Version None)
Quarter: 2004Q3

REPORT INFORMATION
  Report Type: 
  Country: None (occurrence: None)
  Receive Date: 20040712
  Receipt Date: 20040625
  Transmission Date: 20050211
  Serious: Yes (Death, Hospitalization)
  Sender: FDA-Public Use
  Company Number: FR-JNJFOC-20040607384

PATIENT
  Age: 90 Year
  Sex: Male

DRUGS (14)
  1. CONTRAMAL (TRAMADOL HYDROCHLORIDE) TABLETS [Suspect]
     Indication: DRUG USE FOR UNKNOWN INDICATION
     Dosage: SEE IMAGE
     Route: 048
     Dates: start: 20040415, end: 20040422
  2. CONTRAMAL (TRAMADOL HYDROCHLORIDE) TABLETS [Suspect]
     Indication: DRUG USE FOR UNKNOWN INDICATION
     Dosage: SEE IMAGE
     Route: 048
     Dates: start: 20040423, end: 20040503
  3. FORTIMEL (ALL OTHER THERAPEUTIC PRODUCTS) [Concomitant]
  4. LANSOYL (PARAFFIN, LIQUID) [Concomitant]
  5. OMEPRAZOLE [Concomitant]
  6. EDUCTYL (EDUCTYL) [Concomitant]
  7. PAROXETINE HCL [Concomitant]
  8. FORLAX (MACROGOL) [Concomitant]
  9. TRIATEC FAIBLE (RAMIPRIL) [Concomitant]
  10. PLAVIX [Concomitant]
  11. POLYTONYL (POLYTONYL) [Concomitant]
  12. LIBRAX [Concomitant]
  13. PRIMERPAN (METOCLOPRAMIDE) [Concomitant]
  14. MOTILYO (DOMPERIDONE) [Concomitant]

REACTIONS (1)
  - INTESTINAL OBSTRUCTION [None]
